FAERS Safety Report 5376140-X (Version None)
Quarter: 2007Q2

REPORT INFORMATION
  Report Type: 
  Country: None (occurrence: None)
  Receive Date: 20070628
  Receipt Date: 20070628
  Transmission Date: 20071010
  Serious: Yes (Other)
  Sender: FDA-Public Use
  Company Number: None

PATIENT
  Age: 57 Year
  Sex: Female
  Weight: 87.0906 kg

DRUGS (1)
  1. AMLODIPINE [Suspect]
     Dosage: 5 MG; QD

REACTIONS (3)
  - ASTHENIA [None]
  - FEELING ABNORMAL [None]
  - PAIN IN JAW [None]
